FAERS Safety Report 7669409-7 (Version None)
Quarter: 2011Q3

REPORT INFORMATION
  Report Type: 
  Country: None (occurrence: None)
  Receive Date: 20110808
  Receipt Date: 20110726
  Transmission Date: 20111222
  Serious: Yes (Hospitalization, Other)
  Sender: FDA-Public Use
  Company Number: US-ROCHE-794206

PATIENT
  Sex: Male

DRUGS (12)
  1. ASPIRIN [Concomitant]
     Dates: start: 20070530
  2. DOCUSATE [Concomitant]
     Dates: start: 20070612
  3. PREDNISONE [Suspect]
     Route: 065
     Dates: start: 20070712
  4. LASIX [Concomitant]
     Dates: start: 20070716
  5. NORVASC [Concomitant]
     Dates: start: 20070724
  6. PRILOSEC [Concomitant]
     Dates: start: 20070603
  7. PSYLLIUM [Concomitant]
     Dates: start: 20070603
  8. SENNA [Concomitant]
     Dates: start: 20070603
  9. CYCLOSPORINE [Suspect]
     Indication: RENAL TRANSPLANT
     Dosage: 1 DOSAGE FORM 1 DAY
     Route: 048
     Dates: start: 20070529
  10. MYCOPHENOLATE MOFETIL [Suspect]
     Route: 065
     Dates: start: 20070529
  11. SEPTRA [Concomitant]
     Dates: start: 20070530
  12. ASACOL [Concomitant]
     Dates: start: 20070612

REACTIONS (5)
  - URINARY TRACT OBSTRUCTION [None]
  - TUBULOINTERSTITIAL NEPHRITIS [None]
  - GLOMERULONEPHROPATHY [None]
  - HYDRONEPHROSIS [None]
  - URINARY TRACT INFECTION [None]
